FAERS Safety Report 7854771-2 (Version None)
Quarter: 2011Q4

REPORT INFORMATION
  Report Type: 
  Country: None (occurrence: None)
  Receive Date: 20111026
  Receipt Date: 20111024
  Transmission Date: 20120403
  Serious: No
  Sender: FDA-Public Use
  Company Number: US-TEVA-306545USA

PATIENT
  Sex: Female
  Weight: 93.978 kg

DRUGS (1)
  1. PLAN B ONE-STEP [Suspect]
     Indication: POST COITAL CONTRACEPTION
     Dosage: 1.5 MILLIGRAM;
     Route: 048
     Dates: start: 20111010, end: 20111010

REACTIONS (5)
  - DECREASED APPETITE [None]
  - SLEEP DISORDER [None]
  - FATIGUE [None]
  - MENSTRUATION IRREGULAR [None]
  - NAUSEA [None]
